FAERS Safety Report 8890351 (Version 1)
Quarter: 2012Q4

REPORT INFORMATION
  Report Type: 
  Country: AU (occurrence: AU)
  Receive Date: 20121107
  Receipt Date: 20121107
  Transmission Date: 20130627
  Serious: Yes (Hospitalization)
  Sender: FDA-Public Use
  Company Number: PHHY2012AU101300

PATIENT
  Age: 40 Year
  Sex: Male

DRUGS (1)
  1. CLOZARIL [Suspect]
     Dosage: 600 mg
     Dates: start: 20020612

REACTIONS (1)
  - Bipolar disorder [Unknown]
